FAERS Safety Report 8936937 (Version 1)
Quarter: 2012Q4

REPORT INFORMATION
  Report Type: 
  Country: CA (occurrence: CA)
  Receive Date: 20121130
  Receipt Date: 20121130
  Transmission Date: 20130627
  Serious: Yes (Other)
  Sender: FDA-Public Use
  Company Number: CA-ASTRAZENECA-2012SE88841

PATIENT
  Age: 52 Year
  Sex: Male
  Weight: 76.2 kg

DRUGS (2)
  1. CRESTOR [Suspect]
     Route: 048
  2. PULMICORT [Concomitant]
     Route: 065

REACTIONS (2)
  - Blood testosterone increased [Recovered/Resolved]
  - Erectile dysfunction [Recovered/Resolved]
